FAERS Safety Report 12156844 (Version 1)
Quarter: 2016Q1

REPORT INFORMATION
  Report Type: Spontaneous
  Country: US (occurrence: US)
  Receive Date: 20160307
  Receipt Date: 20160307
  Transmission Date: 20160526
  Serious: Yes (Disabling)
  Sender: FDA-Public Use
  Company Number: US-ABBVIE-16P-163-1576420-00

PATIENT
  Sex: Male

DRUGS (1)
  1. DEPAKOTE [Suspect]
     Active Substance: DIVALPROEX SODIUM
     Indication: MATERNAL EXPOSURE TIMING UNSPECIFIED
     Route: 064

REACTIONS (7)
  - Impulse-control disorder [Unknown]
  - Precocious puberty [Unknown]
  - Foetal exposure during pregnancy [Unknown]
  - Aggression [Unknown]
  - Attention deficit/hyperactivity disorder [Unknown]
  - Affective disorder [Unknown]
  - Oppositional defiant disorder [Unknown]
